FAERS Safety Report 8878128 (Version 1)
Quarter: 2012Q4

REPORT INFORMATION
  Report Type: 
  Country: US (occurrence: US)
  Receive Date: 20121025
  Receipt Date: 20121025
  Transmission Date: 20130627
  Serious: No
  Sender: FDA-Public Use
  Company Number: US-AMGEN-USASP2012021618

PATIENT
  Sex: Female

DRUGS (6)
  1. ENBREL [Suspect]
     Indication: PRODUCT USED FOR UNKNOWN INDICATION
     Dosage: 50 mg, qwk
     Route: 058
  2. BENAZEPRIL [Concomitant]
     Dosage: 10 mg, UNK
  3. LEVOTHROID [Concomitant]
     Dosage: 500 mug, UNK
  4. MULTIVITAMIN                       /00097801/ [Concomitant]
  5. VITAMIN E                          /00110501/ [Concomitant]
     Dosage: 100 IU, UNK
  6. FISH OIL [Concomitant]

REACTIONS (3)
  - Joint effusion [Unknown]
  - Sinusitis [Unknown]
  - Drug ineffective [Unknown]
